FAERS Safety Report 8993188 (Version 3)
Quarter: 2013Q1

REPORT INFORMATION
  Report Type: Spontaneous
  Country: JP (occurrence: JP)
  Receive Date: 20130102
  Receipt Date: 20130116
  Transmission Date: 20140127
  Serious: Yes (Other)
  Sender: FDA-Public Use
  Company Number: JP-JNJFOC-20121211192

PATIENT
  Sex: 0

DRUGS (3)
  1. TRAMCET [Suspect]
     Indication: PRODUCT USED FOR UNKNOWN INDICATION
     Dosage: 2 DOSES 1 PER 1 DAY
     Route: 048
  2. LEVOTOMIN [Concomitant]
     Route: 048
     Dates: start: 20121113
  3. HYPNOTIC AGENT [Concomitant]
     Route: 065
     Dates: start: 20121113

REACTIONS (1)
  - Respiratory arrest [Unknown]
